FAERS Safety Report 9342966 (Version 1)
Quarter: 2013Q2

REPORT INFORMATION
  Report Type: Spontaneous
  Country: BR (occurrence: BR)
  Receive Date: 20130611
  Receipt Date: 20130611
  Transmission Date: 20140414
  Serious: Yes (Other)
  Sender: FDA-Public Use
  Company Number: BR-VERTEX PHARMACEUTICALS INC-2013-006933

PATIENT
  Age: 66 Year
  Sex: Female
  Weight: 55 kg

DRUGS (6)
  1. INCIVO [Suspect]
     Indication: HEPATITIS C
     Dosage: UNK
     Route: 048
     Dates: start: 20130605
  2. RIBAVIRIN [Concomitant]
     Indication: HEPATITIS C
     Dosage: DOSAGE FORM: UNSPECIFIED
     Route: 048
     Dates: start: 20130605
  3. INTERFERON [Concomitant]
     Indication: HEPATITIS C
     Dosage: DOSAGE FORM: UNSPECIFIED
     Route: 065
     Dates: start: 20130605
  4. CAPTOPRIL [Concomitant]
     Indication: HYPERTENSION
     Dosage: DOSAGE FORM: UNSPECIFIED
     Route: 065
     Dates: start: 2008
  5. CLONAZEPAM [Concomitant]
     Indication: SLEEP DISORDER THERAPY
     Dosage: DOSAGE FORM: UNSPECIFIED
     Route: 065
     Dates: start: 2008
  6. OMEPRAZOLE [Concomitant]
     Indication: GASTROINTESTINAL DISORDER THERAPY
     Dosage: DOSAGE FORM: UNSPECIFIED
     Route: 065
     Dates: start: 2008

REACTIONS (3)
  - Palpitations [Not Recovered/Not Resolved]
  - Burning sensation [Not Recovered/Not Resolved]
  - Pyrexia [Not Recovered/Not Resolved]
